FAERS Safety Report 9731196 (Version 3)
Quarter: 2013Q4

REPORT INFORMATION
  Report Type: Report from Study
  Country: JP (occurrence: JP)
  Receive Date: 20131205
  Receipt Date: 20131219
  Transmission Date: 20140711
  Serious: Yes (Other)
  Sender: FDA-Public Use
  Company Number: JP-009507513-1305JPN006079

PATIENT
  Age: 35 Year
  Sex: Female
  Weight: 56 kg

DRUGS (7)
  1. GANIRELIX ACETATE [Suspect]
     Indication: PREVENTION OF PREMATURE OVULATION
     Dosage: 0.25 MG, QD
     Route: 058
     Dates: start: 20100519, end: 20100521
  2. PREGNYL 5000IU [Suspect]
     Indication: OVULATION INDUCTION
     Dosage: 10(THOUSAND-MILLION UNIT), QD
     Route: 051
     Dates: start: 20100522, end: 20100522
  3. FOLLISTIM INJECTION 50 [Suspect]
     Indication: IN VITRO FERTILISATION
     Dosage: 100(UNDER1000UNIT), QD
     Route: 058
     Dates: start: 20100512, end: 20100522
  4. MENOTROPINS [Concomitant]
     Indication: IN VITRO FERTILISATION
     Dosage: 75 UNDER1000UNIT, QD
     Route: 030
     Dates: start: 20100512, end: 20100518
  5. PROGESTON [Concomitant]
     Indication: IN VITRO FERTILISATION
     Dosage: 50 MG, QD
     Route: 030
     Dates: start: 20100526, end: 20100609
  6. ESTRANA [Concomitant]
     Indication: IN VITRO FERTILISATION
     Dosage: 1 DF, QD; FORMULATION: TAP
     Route: 062
     Dates: start: 20100529, end: 20100609
  7. GONADOTROPIN, CHORIONIC [Concomitant]
     Indication: IN VITRO FERTILISATION
     Dosage: 50 UNDER1000UNIT, QD
     Route: 030
     Dates: start: 20100519, end: 20100522

REACTIONS (2)
  - Abortion [Recovered/Resolved]
  - Maternal exposure before pregnancy [Recovered/Resolved]
